FAERS Safety Report 6159961-5 (Version None)
Quarter: 2009Q2

REPORT INFORMATION
  Report Type: 
  Country: None (occurrence: None)
  Receive Date: 20090415
  Receipt Date: 20090331
  Transmission Date: 20091009
  Serious: Yes (Hospitalization)
  Sender: FDA-Public Use
  Company Number: 2009S1005570

PATIENT
  Age: 20 Year
  Sex: Female
  Weight: 77 kg

DRUGS (3)
  1. METFORMIN HCL [Suspect]
     Indication: GLUCOSE TOLERANCE IMPAIRED
     Dosage: 850 MG; DAILY
  2. METFORMIN HCL [Suspect]
     Indication: OBESITY
     Dosage: 850 MG; DAILY
  3. METFORMIN HCL [Suspect]
     Indication: SUICIDE ATTEMPT
     Dosage: 850 MG; DAILY

REACTIONS (10)
  - BLOOD CREATININE INCREASED [None]
  - BLOOD POTASSIUM INCREASED [None]
  - BLOOD SODIUM DECREASED [None]
  - COAGULATION FACTOR VII LEVEL DECREASED [None]
  - COAGULOPATHY [None]
  - LEUKOCYTOSIS [None]
  - METABOLIC ACIDOSIS [None]
  - OVERDOSE [None]
  - PROTEIN S DECREASED [None]
  - SUICIDE ATTEMPT [None]
